FAERS Safety Report 12101574 (Version 1)
Quarter: 2016Q1

REPORT INFORMATION
  Report Type: Report from Study
  Country: VE (occurrence: VE)
  Receive Date: 20160222
  Receipt Date: 20160222
  Transmission Date: 20160526
  Serious: Yes (Other)
  Sender: FDA-Public Use
  Company Number: PHHY2015VE086370

PATIENT
  Sex: Male
  Weight: 37 kg

DRUGS (4)
  1. XOLAIR [Suspect]
     Active Substance: OMALIZUMAB
     Indication: ASTHMA
     Dosage: 150 MG, QMO
     Route: 058
     Dates: start: 201412, end: 201506
  2. FORADIL [Suspect]
     Active Substance: FORMOTEROL FUMARATE
     Indication: ASTHMA
     Dosage: 200 UG, QD
     Route: 055
     Dates: start: 201412
  3. MIFLONIDE [Suspect]
     Active Substance: BUDESONIDE
     Indication: ASTHMA
     Dosage: 12 UG, QD
     Route: 055
     Dates: start: 201412
  4. XOLAIR [Suspect]
     Active Substance: OMALIZUMAB
     Dosage: 300 MG, QMO
     Route: 055
     Dates: start: 201506, end: 201512

REACTIONS (5)
  - Product use issue [Unknown]
  - Asthmatic crisis [Recovering/Resolving]
  - Asthma [Recovering/Resolving]
  - Lower respiratory tract inflammation [Recovering/Resolving]
  - Cough [Recovering/Resolving]
